FAERS Safety Report 8514469-4 (Version None)
Quarter: 2012Q3

REPORT INFORMATION
  Report Type: 
  Country: None (occurrence: None)
  Receive Date: 20120717
  Receipt Date: 20120713
  Transmission Date: 20120928
  Serious: Yes (Other)
  Sender: FDA-Public Use
  Company Number: US-PFIZER INC-2012129058

PATIENT
  Sex: Female
  Weight: 77.098 kg

DRUGS (7)
  1. NEURONTIN [Suspect]
     Dosage: UNK
  2. METOPROLOL [Concomitant]
     Indication: HYPERTENSION
     Dosage: 50 MG, 2X/DAY
  3. PRAVASTATIN [Concomitant]
     Indication: BLOOD CHOLESTEROL INCREASED
     Dosage: 40 MG, DAILY
  4. GLIPIZIDE [Concomitant]
     Indication: DIABETES MELLITUS
     Dosage: 10 MG, 2X/DAY
  5. INSULIN [Concomitant]
     Indication: DIABETES MELLITUS
     Dosage: UNK, DAILY
  6. NEURONTIN [Suspect]
     Indication: NEUROPATHY PERIPHERAL
     Dosage: 300 MG, DAILY AT NIGHT
     Dates: start: 20110401
  7. NEURONTIN [Suspect]
     Dosage: 300MG IN THE MORNING AND 600MG IN THE EVENING

REACTIONS (6)
  - WEIGHT INCREASED [None]
  - INVESTIGATION ABNORMAL [None]
  - MYOCARDIAL INFARCTION [None]
  - NEUROPATHY PERIPHERAL [None]
  - CORONARY ARTERY OCCLUSION [None]
  - GAIT DISTURBANCE [None]
